FAERS Safety Report 7558821-2 (Version None)
Quarter: 2011Q2

REPORT INFORMATION
  Report Type: 
  Country: None (occurrence: None)
  Receive Date: 20110621
  Receipt Date: 20110607
  Transmission Date: 20111010
  Serious: Yes (Other)
  Sender: FDA-Public Use
  Company Number: US-ROCHE-782903

PATIENT
  Sex: Female

DRUGS (2)
  1. IRINOTECAN HYDROCHLORIDE [Suspect]
     Indication: GLIOMA
     Dosage: DOSE: 125-150 MG/M2 IV OVER 90 MIN EVERY 2 WEEKS STARTING ON DAY 15 LAST DOSE PRIOR TO SAE: 1JULY10
     Route: 042
     Dates: start: 20100114
  2. BEVACIZUMAB [Suspect]
     Indication: GLIOMA
     Dosage: FREQUENCY: 10 MG/KG OVER 90-30 MINS ON DAY 1 AND 15 LAST DOSE PRIOR TO SAE: 01 JULY 2010
     Route: 042
     Dates: start: 20100114

REACTIONS (1)
  - ARTHRALGIA [None]
